FAERS Safety Report 4958563-3 (Version None)
Quarter: 2006Q1

REPORT INFORMATION
  Report Type: 
  Country: None (occurrence: None)
  Receive Date: 20060201
  Receipt Date: 20051201
  Transmission Date: 20060701
  Serious: No
  Sender: FDA-Public Use
  Company Number: 2005PV005240

PATIENT
  Age: 84 Year
  Sex: Female
  Weight: 68.0396 kg

DRUGS (9)
  1. BYETTA [Suspect]
     Indication: DIABETES MELLITUS NON-INSULIN-DEPENDENT
     Dosage: 10 MCG; BID; SC; SEE IMAGE
     Route: 058
     Dates: start: 20051110, end: 20051205
  2. BYETTA [Suspect]
     Indication: DIABETES MELLITUS NON-INSULIN-DEPENDENT
     Dosage: 10 MCG; BID; SC; SEE IMAGE
     Route: 058
     Dates: start: 20051206
  3. INSULIN [Concomitant]
  4. WARFARIN SODIUM [Concomitant]
  5. CORTICOSTEROID NOS [Concomitant]
  6. HUMULIN N [Concomitant]
  7. LANTUS [Concomitant]
  8. PREDNISONE [Concomitant]
  9. BROMELAIN [Concomitant]

REACTIONS (9)
  - BLOOD GLUCOSE ABNORMAL [None]
  - BREATH ODOUR [None]
  - DRUG EFFECT DECREASED [None]
  - ENERGY INCREASED [None]
  - ERUCTATION [None]
  - INJECTION SITE BRUISING [None]
  - INJECTION SITE PAIN [None]
  - THERAPEUTIC RESPONSE UNEXPECTED [None]
  - WEIGHT DECREASED [None]
